FAERS Safety Report 8067986-8 (Version None)
Quarter: 2012Q1

REPORT INFORMATION
  Report Type: 
  Country: None (occurrence: None)
  Receive Date: 20120124
  Receipt Date: 20120112
  Transmission Date: 20120608
  Serious: Yes (Other)
  Sender: FDA-Public Use
  Company Number: US-RB-033327-11

PATIENT
  Sex: Female

DRUGS (6)
  1. SUBOXONE [Suspect]
     Indication: DRUG DEPENDENCE
     Dosage: VARIOUS DOSES
     Route: 060
     Dates: start: 20110501, end: 20110923
  2. SUBOXONE [Suspect]
     Dosage: VARIOUS DOSES
     Route: 060
     Dates: start: 20110501, end: 20110923
  3. BUPRENORPHINE [Suspect]
     Indication: DRUG DEPENDENCE
     Dosage: VARIOUS DOSES
     Route: 060
     Dates: start: 20110501, end: 20110923
  4. OTHER OPIATES [Suspect]
     Indication: DRUG DEPENDENCE
     Dosage: UNKNOWN DOSING REGIMEN
     Route: 065
     Dates: start: 20110501, end: 20110923
  5. SUBUTEX [Suspect]
     Indication: DRUG DEPENDENCE
     Dosage: VARIOUS DOSES
     Route: 060
     Dates: start: 20110501, end: 20110923
  6. SUBOXONE [Suspect]
     Indication: DRUG DEPENDENCE
     Dosage: 4 MG DAILY
     Route: 060
     Dates: start: 20100101, end: 20110501

REACTIONS (6)
  - PREGNANCY [None]
  - DRUG ABUSE [None]
  - PREMATURE DELIVERY [None]
  - WRONG TECHNIQUE IN DRUG USAGE PROCESS [None]
  - SUBSTANCE ABUSE [None]
  - MATERNAL EXPOSURE DURING PREGNANCY [None]
